FAERS Safety Report 12708600 (Version 1)
Quarter: 2016Q3

REPORT INFORMATION
  Report Type: Spontaneous
  Country: US (occurrence: US)
  Receive Date: 20160901
  Receipt Date: 20160901
  Transmission Date: 20161109
  Serious: Yes (Other)
  Sender: FDA-Public Use
  Company Number: US-PFIZER INC-2016409335

PATIENT
  Age: 35 Year
  Sex: Male

DRUGS (6)
  1. CRESEMBA [Suspect]
     Active Substance: ISAVUCONAZONIUM SULFATE
     Indication: FUNGAL INFECTION
     Dosage: UNK
     Route: 042
     Dates: start: 20160720
  2. POLYMYXIN B. [Suspect]
     Active Substance: POLYMYXIN B
     Indication: FUNGAL INFECTION
     Dosage: UNK
  3. MEROPENEM. [Suspect]
     Active Substance: MEROPENEM
     Indication: FUNGAL INFECTION
     Dosage: UNK
  4. DAPTOMYCIN. [Suspect]
     Active Substance: DAPTOMYCIN
     Indication: FUNGAL INFECTION
     Dosage: UNK
  5. TELAVANCIN [Suspect]
     Active Substance: TELAVANCIN
     Indication: FUNGAL INFECTION
     Dosage: UNK
  6. AMBISOME [Suspect]
     Active Substance: AMPHOTERICIN B
     Indication: FUNGAL INFECTION
     Dosage: UNK

REACTIONS (3)
  - Product use issue [Unknown]
  - Rhabdomyolysis [Not Recovered/Not Resolved]
  - Blood creatine phosphokinase increased [Unknown]
